FAERS Safety Report 5441760-0 (Version None)
Quarter: 2007Q3

REPORT INFORMATION
  Report Type: 
  Country: None (occurrence: None)
  Receive Date: 20070904
  Receipt Date: 20070831
  Transmission Date: 20080115
  Serious: Yes (Life-Threatening, Hospitalization)
  Sender: FDA-Public Use
  Company Number: PHBS2007SG14394

PATIENT
  Age: 34 Year
  Sex: Male

DRUGS (4)
  1. VALPROATE SODIUM [Concomitant]
     Dosage: 400 MG, TID
  2. BENZTROPINE MESYLATE [Concomitant]
     Dosage: 2 MG, TID
  3. DIAZEPAM [Concomitant]
     Dosage: 10 MG, QD
  4. CLOZAPINE [Suspect]
     Indication: SCHIZOPHRENIA
     Dosage: 300

REACTIONS (33)
  - ABDOMINAL DISTENSION [None]
  - ABDOMINAL PAIN [None]
  - ABDOMINAL TENDERNESS [None]
  - BLOOD CREATININE INCREASED [None]
  - BLOOD PRESSURE DECREASED [None]
  - BLOOD UREA INCREASED [None]
  - COLECTOMY [None]
  - CONSTIPATION [None]
  - DEHYDRATION [None]
  - ENDOSCOPY [None]
  - ENEMA ADMINISTRATION [None]
  - FAECALOMA [None]
  - FAECES HARD [None]
  - GASTROINTESTINAL MOTILITY DISORDER [None]
  - GASTROINTESTINAL NECROSIS [None]
  - GASTROINTESTINAL OEDEMA [None]
  - GASTROINTESTINAL SOUNDS ABNORMAL [None]
  - GASTROINTESTINAL TUBE INSERTION [None]
  - ILEOSTOMY [None]
  - INTESTINAL DILATATION [None]
  - INTESTINAL ISCHAEMIA [None]
  - INTESTINAL ULCER [None]
  - LAPAROTOMY [None]
  - MECHANICAL VENTILATION [None]
  - METABOLIC ACIDOSIS [None]
  - NAUSEA [None]
  - NECROTISING COLITIS [None]
  - PYREXIA [None]
  - RECTAL TUBE INSERTION [None]
  - TACHYCARDIA [None]
  - TACHYPNOEA [None]
  - VOMITING [None]
  - WHITE BLOOD CELL COUNT INCREASED [None]
